FAERS Safety Report 13716657 (Version 2)
Quarter: 2017Q3

REPORT INFORMATION
  Report Type: Report from Study
  Country: US (occurrence: US)
  Receive Date: 20170705
  Receipt Date: 20170724
  Transmission Date: 20171127
  Serious: No
  Sender: FDA-Public Use
  Company Number: US-AMGEN-USASL2017099471

PATIENT
  Age: 54 Year
  Sex: Female

DRUGS (1)
  1. ENBREL [Suspect]
     Active Substance: ETANERCEPT
     Indication: PSORIATIC ARTHROPATHY
     Dosage: 50 MG, QWK
     Route: 065

REACTIONS (11)
  - Dizziness [Unknown]
  - Nausea [Unknown]
  - Psoriasis [Unknown]
  - Injection site warmth [Unknown]
  - Injection site induration [Unknown]
  - Injection site pruritus [Unknown]
  - Abdominal pain upper [Unknown]
  - Injection site erythema [Unknown]
  - Headache [Unknown]
  - Stress [Unknown]
  - Injection site swelling [Unknown]

NARRATIVE: CASE EVENT DATE: 20170627
